FAERS Safety Report 18080113 (Version 3)
Quarter: 2020Q3

REPORT INFORMATION
  Report Type: Report from Study
  Country: AT (occurrence: AT)
  Receive Date: 20200728
  Receipt Date: 20200804
  Transmission Date: 20201103
  Serious: Yes (Other)
  Sender: FDA-Public Use
  Company Number: AT-SHIRE-AT202024031

PATIENT

DRUGS (1)
  1. TAKHZYRO [Suspect]
     Active Substance: LANADELUMAB-FLYO
     Indication: HEREDITARY ANGIOEDEMA
     Dosage: 300 MILLIGRAM, OTHER (EVERY 4 WEEKS)
     Route: 058
     Dates: start: 20190501

REACTIONS (1)
  - Spinal meningioma benign [Not Recovered/Not Resolved]

NARRATIVE: CASE EVENT DATE: 20200722
